FAERS Safety Report 9502406 (Version 2)
Quarter: 2013Q3

REPORT INFORMATION
  Report Type: Spontaneous
  Country: US (occurrence: US)
  Receive Date: 20130906
  Receipt Date: 20130927
  Transmission Date: 20140515
  Serious: Yes (Other)
  Sender: FDA-Public Use
  Company Number: US-AMGEN-USASP2013061590

PATIENT
  Sex: Female
  Weight: 43.08 kg

DRUGS (2)
  1. PROLIA [Suspect]
     Indication: OSTEOPOROSIS POSTMENOPAUSAL
     Dosage: UNK
     Route: 065
     Dates: start: 201302
  2. CALCIUM [Concomitant]

REACTIONS (18)
  - Multiple sclerosis [Unknown]
  - Thyroid disorder [Unknown]
  - Hand deformity [Recovered/Resolved]
  - Musculoskeletal stiffness [Recovered/Resolved]
  - Nail bed disorder [Unknown]
  - Nail discolouration [Unknown]
  - Nail ridging [Unknown]
  - Renal pain [Unknown]
  - Urine output decreased [Unknown]
  - Dysgeusia [Unknown]
  - Injection site reaction [Unknown]
  - Injection site erythema [Unknown]
  - Injection site swelling [Unknown]
  - Mobility decreased [Unknown]
  - Pruritus [Unknown]
  - Myalgia [Recovered/Resolved]
  - Arthralgia [Recovered/Resolved]
  - Hypocalcaemia [Recovered/Resolved]
